APPROVED DRUG PRODUCT: CHLOROTHIAZIDE W/ RESERPINE
Active Ingredient: CHLOROTHIAZIDE; RESERPINE
Strength: 250MG;0.125MG
Dosage Form/Route: TABLET;ORAL
Application: A084853 | Product #001
Applicant: WATSON LABORATORIES INC
Approved: Approved Prior to Jan 1, 1982 | RLD: No | RS: No | Type: DISCN